FAERS Safety Report 8682536 (Version 2)
Quarter: 2012Q4

REPORT INFORMATION
  Report Type: Spontaneous
  Country: US (occurrence: None)
  Receive Date: 20120709
  Receipt Date: 20120917
  Transmission Date: 20130627
  Serious: Yes (Other)
  Sender: FDA-Public Use
  Company Number: DSA_58051_2012

PATIENT
  Sex: Female
  Weight: 68.04 kg

DRUGS (19)
  1. XENAZINE [Suspect]
     Indication: HUNTINGTON^S DISEASE
     Route: 048
     Dates: start: 20120329, end: 20120621
  2. PROZAC [Concomitant]
  3. SEROQUEL [Concomitant]
  4. TAPAZOLE [Concomitant]
  5. NAPROXEN [Concomitant]
  6. ZIAC [Concomitant]
  7. LIPITOR [Concomitant]
  8. ZANTAC [Concomitant]
  9. SAVELLA [Concomitant]
  10. B-12 [Concomitant]
  11. VITAMIN D /00107901/ [Concomitant]
  12. AMARYL [Concomitant]
  13. CLARITIN [Concomitant]
  14. BENADRYL /00000402/ [Concomitant]
  15. TYLENOL REGULAR STRENGTH [Concomitant]
  16. MULTIVITAMINS [Concomitant]
  17. TUMS [Concomitant]
  18. DULCOLAX /00064401/ [Concomitant]
  19. VOLTAREN /00372301/ [Concomitant]

REACTIONS (8)
  - Panic reaction [None]
  - Anxiety [None]
  - Hyperhidrosis [None]
  - Hunger [None]
  - Depressed mood [None]
  - Depression [None]
  - Suicidal ideation [None]
  - Thyroid function test abnormal [None]
